FAERS Safety Report 20787651 (Version 1)
Quarter: 2022Q2

REPORT INFORMATION
  Report Type: Spontaneous
  Country: PL (occurrence: PL)
  Receive Date: 20220505
  Receipt Date: 20220505
  Transmission Date: 20220721
  Serious: Yes (Other)
  Sender: FDA-Public Use
  Company Number: PL-NOVARTISPH-NVSC2022PL100124

PATIENT
  Age: 75 Year
  Sex: Female

DRUGS (1)
  1. RYDAPT [Suspect]
     Active Substance: MIDOSTAURIN
     Indication: Acute myeloid leukaemia
     Dosage: 50 MG, BID (1 X INDUCTION CYCLE, 3 X CONSOLIDATION CYCLES)
     Route: 065
     Dates: start: 20210929, end: 20220419

REACTIONS (5)
  - Pancytopenia [Unknown]
  - Chloroma [Unknown]
  - Acute myeloid leukaemia recurrent [Unknown]
  - Chest pain [Unknown]
  - Asthenia [Unknown]

NARRATIVE: CASE EVENT DATE: 20220325
